FAERS Safety Report 23844334 (Version 2)
Quarter: 2024Q2

REPORT INFORMATION
  Report Type: Spontaneous
  Country: US (occurrence: US)
  Receive Date: 20240510
  Receipt Date: 20240516
  Transmission Date: 20240716
  Serious: Yes (Other)
  Sender: FDA-Public Use
  Company Number: US-TEVA-VS-3196538

PATIENT
  Sex: Female

DRUGS (1)
  1. JUNEL FE 1/20 [Suspect]
     Active Substance: ETHINYL ESTRADIOL\NORETHINDRONE ACETATE
     Indication: Heavy menstrual bleeding
     Dosage: STRENGTH: 1.5MG/30MCG
     Route: 065

REACTIONS (3)
  - Heavy menstrual bleeding [Recovered/Resolved]
  - Drug ineffective [Recovered/Resolved]
  - Acne cystic [Recovered/Resolved]
